FAERS Safety Report 25791416 (Version 1)
Quarter: 2025Q3

REPORT INFORMATION
  Report Type: Spontaneous
  Country: US (occurrence: US)
  Receive Date: 20250911
  Receipt Date: 20250911
  Transmission Date: 20251021
  Serious: Yes (Hospitalization)
  Sender: ROCHE
  Company Number: US-BoehringerIngelheim-2025-BI-093334

PATIENT
  Age: 74 Year
  Sex: Female

DRUGS (1)
  1. METALYSE [Suspect]
     Active Substance: TENECTEPLASE
     Indication: Thalamic stroke
     Route: 065

REACTIONS (2)
  - Intraocular haematoma [Recovering/Resolving]
  - Orbital compartment syndrome [Recovering/Resolving]
